FAERS Safety Report 10638301 (Version 2)
Quarter: 2014Q4

REPORT INFORMATION
  Report Type: Spontaneous
  Country: JP (occurrence: JP)
  Receive Date: 20141208
  Receipt Date: 20141208
  Transmission Date: 20150529
  Serious: Yes (Hospitalization, Other)
  Sender: FDA-Public Use
  Company Number: JP-GLAXOSMITHKLINE-JP2014JPN029902

PATIENT
  Age: 50 Year
  Sex: Male

DRUGS (1)
  1. VOTRIENT [Suspect]
     Active Substance: PAZOPANIB HYDROCHLORIDE
     Indication: LEIOMYOSARCOMA
     Dosage: UNK
     Route: 048
     Dates: start: 20140331, end: 20141125

REACTIONS (5)
  - Generalised oedema [Unknown]
  - Oedema [Unknown]
  - Dyspnoea [Unknown]
  - Nephrotic syndrome [Unknown]
  - Pleural effusion [Unknown]

NARRATIVE: CASE EVENT DATE: 2014
